FAERS Safety Report 7818142-7 (Version None)
Quarter: 2011Q4

REPORT INFORMATION
  Report Type: 
  Country: None (occurrence: None)
  Receive Date: 20111017
  Receipt Date: 20111010
  Transmission Date: 20120403
  Serious: Yes (Hospitalization)
  Sender: FDA-Public Use
  Company Number: GB-ROCHE-790928

PATIENT
  Age: 69 Year
  Sex: Male

DRUGS (4)
  1. CYCLOPHOSPHAMIDE [Concomitant]
  2. RITUXIMAB [Suspect]
     Indication: CHRONIC LYMPHOCYTIC LEUKAEMIA
     Route: 042
     Dates: start: 20110501, end: 20110605
  3. SPIRONOLACTONE [Suspect]
     Indication: CHRONIC LYMPHOCYTIC LEUKAEMIA
  4. FLUDARABINE PHOSPHATE [Concomitant]

REACTIONS (14)
  - CAPILLARY LEAK SYNDROME [None]
  - DECREASED APPETITE [None]
  - ORTHOPNOEA [None]
  - DYSPNOEA [None]
  - HYPOXIA [None]
  - OEDEMA PERIPHERAL [None]
  - BLOOD ALBUMIN DECREASED [None]
  - ABDOMINAL DISTENSION [None]
  - CELLULITIS [None]
  - BLOOD CREATININE INCREASED [None]
  - WEIGHT DECREASED [None]
  - OEDEMA [None]
  - ASCITES [None]
  - PLEURAL EFFUSION [None]
